FAERS Safety Report 17367935 (Version 3)
Quarter: 2020Q1

REPORT INFORMATION
  Report Type: Spontaneous
  Country: US (occurrence: US)
  Receive Date: 20200204
  Receipt Date: 20200317
  Transmission Date: 20200409
  Serious: No
  Sender: FDA-Public Use
  Company Number: US-AMGEN-USASP2020016421

PATIENT

DRUGS (4)
  1. NEUPOGEN [Suspect]
     Active Substance: FILGRASTIM
     Dosage: 480 MICROGRAM
     Route: 065
  2. NEUPOGEN [Suspect]
     Active Substance: FILGRASTIM
     Dosage: 480 MICROGRAM
     Route: 065
  3. NEUPOGEN [Suspect]
     Active Substance: FILGRASTIM
     Indication: PRODUCT USED FOR UNKNOWN INDICATION
     Dosage: 480 MICROGRAM
     Route: 065
  4. NEUPOGEN [Suspect]
     Active Substance: FILGRASTIM
     Dosage: 480 MICROGRAM
     Route: 065

REACTIONS (1)
  - Syringe issue [Unknown]
